FAERS Safety Report 9299502 (Version 1)
Quarter: 2013Q2

REPORT INFORMATION
  Report Type: Spontaneous
  Country: DE (occurrence: DE)
  Receive Date: 20130521
  Receipt Date: 20130521
  Transmission Date: 20140414
  Serious: Yes (Life-Threatening, Hospitalization, Other)
  Sender: FDA-Public Use
  Company Number: DE-009507513-1305DEU011016

PATIENT
  Sex: 0

DRUGS (1)
  1. XELEVIA [Suspect]
     Dosage: UNK
     Route: 048

REACTIONS (1)
  - Acute hepatic failure [Unknown]
